FAERS Safety Report 8420844-9 (Version None)
Quarter: 2012Q2

REPORT INFORMATION
  Report Type: 
  Country: None (occurrence: None)
  Receive Date: 20120530
  Receipt Date: 20120525
  Transmission Date: 20120825
  Serious: Yes (Hospitalization)
  Sender: FDA-Public Use
  Company Number: SP05775

PATIENT
  Age: 62 Year
  Sex: Male

DRUGS (14)
  1. DUPHALAC [Concomitant]
  2. VITAMIN D [Concomitant]
  3. ALDACTONE [Concomitant]
  4. PROPRANOLOL [Concomitant]
  5. HUMALOG [Concomitant]
  6. ATORVASTATIN [Concomitant]
  7. PANTOPRAZOLE SODIUM [Concomitant]
  8. LOVENOX [Concomitant]
  9. LASIX [Concomitant]
  10. FERROUS SULFATE TAB [Concomitant]
  11. VITAMIN B6 [Concomitant]
  12. XIFAXAN [Suspect]
     Indication: HEPATIC ENCEPHALOPATHY
     Dosage: (200 MG), ORAL
     Route: 048
     Dates: start: 20110818
  13. VITAMIN B1 TAB [Concomitant]
  14. LANTUS [Concomitant]

REACTIONS (4)
  - KLEBSIELLA INFECTION [None]
  - BACTERIAL PROSTATITIS [None]
  - STAPHYLOCOCCAL INFECTION [None]
  - COMA [None]
